FAERS Safety Report 15332921 (Version 1)
Quarter: 2018Q3

REPORT INFORMATION
  Report Type: Report from Study
  Country: DE (occurrence: DE)
  Receive Date: 20180830
  Receipt Date: 20180830
  Transmission Date: 20181010
  Serious: Yes (Other)
  Sender: FDA-Public Use
  Company Number: DE-BIOGEN-2017BI00420618

PATIENT
  Age: 29 Year
  Sex: Female
  Weight: 95 kg

DRUGS (4)
  1. PLEGRIDY [Suspect]
     Active Substance: PEGINTERFERON BETA-1A
     Indication: MULTIPLE SCLEROSIS
     Route: 058
     Dates: start: 20141203, end: 20161231
  2. OMEGA 3 FATTY ACIDS [Concomitant]
     Active Substance: OMEGA-3 FATTY ACIDS
     Indication: CONTRACEPTION
     Route: 065
     Dates: start: 201703
  3. MAGNESIIUM [Concomitant]
     Indication: CONTRACEPTION
     Route: 065
     Dates: start: 20170505
  4. FOLIC ACID. [Concomitant]
     Active Substance: FOLIC ACID
     Indication: CONTRACEPTION
     Route: 065
     Dates: start: 201612

REACTIONS (2)
  - Prolonged labour [Recovered/Resolved]
  - Maternal exposure during pregnancy [Recovered/Resolved]

NARRATIVE: CASE EVENT DATE: 20171018
